FAERS Safety Report 16418384 (Version 2)
Quarter: 2019Q2

REPORT INFORMATION
  Report Type: Spontaneous
  Country: ES (occurrence: ES)
  Receive Date: 20190612
  Receipt Date: 20190625
  Transmission Date: 20190711
  Serious: Yes (Other)
  Sender: FDA-Public Use
  Company Number: ES-EMCURE PHARMACEUTICALS LTD-2019-EPL-0276

PATIENT
  Age: 8 Year
  Sex: Female

DRUGS (7)
  1. CIDOFOVIR. [Suspect]
     Active Substance: CIDOFOVIR
     Dosage: UNK, SYSTEMIC
  2. CIDOFOVIR. [Suspect]
     Active Substance: CIDOFOVIR
     Indication: PAPILLOMA VIRAL INFECTION
     Dosage: 4 MILLILITER AT A CONCENTRATION OF 5MG/ML, 3 TIMES/WEEK
  3. INTERFERON ALFA NOS [Concomitant]
     Active Substance: INTERFERON ALFA-2A OR INTERFERON ALFA-2B
     Indication: PAPILLOMA VIRAL INFECTION
     Dosage: UNK
     Route: 058
  4. GARDASIL [Concomitant]
     Active Substance: HUMAN PAPILLOMAVIRUS QUADRIVALENT (TYPES 6, 11, 16, AND 18) VACCINE, RECOMBINANT
     Indication: PAPILLOMA VIRAL INFECTION
     Dosage: UNK
  5. INTERFERON ALFA NOS [Concomitant]
     Active Substance: INTERFERON ALFA-2A OR INTERFERON ALFA-2B
     Indication: LARYNGEAL PAPILLOMA
  6. GARDASIL [Concomitant]
     Active Substance: HUMAN PAPILLOMAVIRUS QUADRIVALENT (TYPES 6, 11, 16, AND 18) VACCINE, RECOMBINANT
     Indication: LARYNGEAL PAPILLOMA
  7. CIDOFOVIR. [Suspect]
     Active Substance: CIDOFOVIR
     Indication: LARYNGEAL PAPILLOMA
     Dosage: UNK, INTRALESIONAL
     Route: 026

REACTIONS (3)
  - Organising pneumonia [Recovering/Resolving]
  - Product use in unapproved indication [Unknown]
  - Product use issue [Unknown]
